FAERS Safety Report 19472177 (Version 7)
Quarter: 2024Q3

REPORT INFORMATION
  Report Type: Spontaneous
  Country: CA (occurrence: None)
  Receive Date: 20210629
  Receipt Date: 20240709
  Transmission Date: 20241017
  Serious: Yes (Other)
  Sender: ORION
  Company Number: CA-PFIZER INC-2021070357

PATIENT
  Age: 74 Year
  Sex: Male

DRUGS (8)
  1. METHOTREXATE [Suspect]
     Active Substance: METHOTREXATE
     Indication: Product used for unknown indication
     Dosage: (FREQUENCY UNKNOWN)
  2. METHOTREXATE [Suspect]
     Active Substance: METHOTREXATE
     Dosage: (FREQUENCY UNKNOWN), 2 TABLETS ONCE PER WEEK
     Dates: start: 201905
  3. XELJANZ [Suspect]
     Active Substance: TOFACITINIB CITRATE
     Indication: Rheumatoid arthritis
     Dates: start: 20190711, end: 202101
  4. XELJANZ [Suspect]
     Active Substance: TOFACITINIB CITRATE
     Dates: start: 2021
  5. XELJANZ [Suspect]
     Active Substance: TOFACITINIB CITRATE
     Dates: start: 2021, end: 20230625
  6. FOLIC ACID [Concomitant]
     Active Substance: FOLIC ACID
     Dosage: FREQUENCY: 2X/WEEK
  7. CELECOXIB [Concomitant]
     Active Substance: CELECOXIB
  8. TRAMADOL ACET [Concomitant]
     Dosage: 37.5-325MG, 1 CO Q4-6H

REACTIONS (5)
  - Arthralgia [Not Recovered/Not Resolved]
  - Condition aggravated [Not Recovered/Not Resolved]
  - Knee arthroplasty [Not Recovered/Not Resolved]
  - Glaucoma [Not Recovered/Not Resolved]
  - Osteoarthritis [Not Recovered/Not Resolved]

NARRATIVE: CASE EVENT DATE: 20210101
